FAERS Safety Report 11191307 (Version 2)
Quarter: 2015Q3

REPORT INFORMATION
  Report Type: Report from Study
  Country: BR (occurrence: BR)
  Receive Date: 20150616
  Receipt Date: 20150715
  Transmission Date: 20151125
  Serious: Yes (Hospitalization, Other)
  Sender: FDA-Public Use
  Company Number: PHHY2015BR067355

PATIENT
  Age: 15 Year
  Sex: Female
  Weight: 33 kg

DRUGS (3)
  1. CIMEX//CEFUROXIME AXETIL [Concomitant]
     Indication: PROPHYLAXIS
     Dosage: 1 DF, QD
     Route: 048
  2. ZOTEON [Suspect]
     Active Substance: TOBRAMYCIN
     Indication: CYSTIC FIBROSIS
     Dosage: 8 DF, QD (8 CAPSULES PER DAY ONE MONTH AND INTERRUPTS TREATMENT FOR 1 MONTH)
     Route: 055
     Dates: start: 201502
  3. CREON [Concomitant]
     Active Substance: PANCRELIPASE AMYLASE\PANCRELIPASE LIPASE\PANCRELIPASE PROTEASE
     Indication: CYSTIC FIBROSIS
     Dosage: 4 DF, QD (ALWAYS DURING MEALS)
     Route: 048

REACTIONS (8)
  - Sinusitis [Recovering/Resolving]
  - Drug intolerance [Recovering/Resolving]
  - Vomiting [Recovered/Resolved]
  - Pseudomonas infection [Unknown]
  - Abdominal discomfort [Recovered/Resolved]
  - Choking [Recovered/Resolved]
  - Staphylococcal infection [Unknown]
  - Stenotrophomonas infection [Unknown]

NARRATIVE: CASE EVENT DATE: 201502
